FAERS Safety Report 20773468 (Version 1)
Quarter: 2022Q2

REPORT INFORMATION
  Report Type: Report from Study
  Country: US (occurrence: US)
  Receive Date: 20220502
  Receipt Date: 20220502
  Transmission Date: 20220721
  Serious: Yes (Hospitalization)
  Sender: FDA-Public Use
  Company Number: US-Accord-262430

PATIENT
  Age: 45 Year
  Sex: Male
  Weight: 89.36 kg

DRUGS (2)
  1. CLOZAPINE [Suspect]
     Active Substance: CLOZAPINE
     Indication: Schizoaffective disorder bipolar type
     Dosage: 325 AT BEDTIME/100MG IN THE MORNING BY MOUTH
  2. MELATONIN [Concomitant]
     Active Substance: MELATONIN
     Dosage: AT BEDTIME

REACTIONS (1)
  - Psychiatric decompensation [Recovered/Resolved]

NARRATIVE: CASE EVENT DATE: 20220308
